FAERS Safety Report 5528905-9 (Version None)
Quarter: 2007Q4

REPORT INFORMATION
  Report Type: 
  Country: None (occurrence: None)
  Receive Date: 20071129
  Receipt Date: 20071121
  Transmission Date: 20080405
  Serious: Yes (Hospitalization, Other)
  Sender: FDA-Public Use
  Company Number: GB-AVENTIS-200720800GDDC

PATIENT
  Age: 68 Year
  Sex: Male

DRUGS (6)
  1. ARAVA [Suspect]
     Indication: RHEUMATOID ARTHRITIS
     Dosage: DOSE: UNK
     Dates: start: 20070501, end: 20071117
  2. METHOTREXATE [Concomitant]
     Indication: RHEUMATOID ARTHRITIS
     Dosage: DOSE: UNK
  3. PREDNISOLONE [Concomitant]
     Indication: RHEUMATOID ARTHRITIS
     Dosage: DOSE: UNK
  4. ANALGESICS [Concomitant]
     Dosage: DOSE: UNK
  5. ANTIHYPERTENSIVES [Concomitant]
     Dosage: DOSE: UNK
  6. DRUGS FOR TREATMENT OF BONE DISEASES [Concomitant]
     Dosage: DOSE: UNK

REACTIONS (2)
  - DYSPNOEA [None]
  - RESPIRATORY FAILURE [None]
